FAERS Safety Report 8425392-8 (Version None)
Quarter: 2012Q2

REPORT INFORMATION
  Report Type: 
  Country: None (occurrence: None)
  Receive Date: 20120605
  Receipt Date: 20120605
  Transmission Date: 20120825
  Serious: No
  Sender: FDA-Public Use
  Company Number: None

PATIENT
  Age: 79 Year
  Sex: Female
  Weight: 52.3 kg

DRUGS (1)
  1. FORTEO [Suspect]
     Indication: OSTEOPOROSIS
     Dosage: TERIPARATIDE 20MCG DAILY SUBQ
     Route: 058
     Dates: start: 20110801, end: 20120401

REACTIONS (1)
  - THROMBOCYTOPENIA [None]
